FAERS Safety Report 7237315-8 (Version None)
Quarter: 2011Q1

REPORT INFORMATION
  Report Type: 
  Country: None (occurrence: None)
  Receive Date: 20110111
  Receipt Date: 20110104
  Transmission Date: 20110831
  Serious: Yes (Hospitalization, Other)
  Sender: FDA-Public Use
  Company Number: UK-ACCORD-002081

PATIENT
  Age: 39 Year
  Sex: Female

DRUGS (1)
  1. SIMVASTATIN [Suspect]
     Dosage: 20.00-MG-3.00PER / -1.0DAYS

REACTIONS (10)
  - HEPATIC FAILURE [None]
  - HAEMODIALYSIS [None]
  - OVERDOSE [None]
  - INCORRECT DOSE ADMINISTERED [None]
  - COMPARTMENT SYNDROME [None]
  - PERIPHERAL ISCHAEMIA [None]
  - RENAL FAILURE ACUTE [None]
  - MYOGLOBINURIA [None]
  - MUSCLE NECROSIS [None]
  - INTENTIONAL DRUG MISUSE [None]
